APPROVED DRUG PRODUCT: TRIMETHOBENZAMIDE HYDROCHLORIDE
Active Ingredient: TRIMETHOBENZAMIDE HYDROCHLORIDE
Strength: 100MG/ML
Dosage Form/Route: INJECTABLE;INJECTION
Application: A088804 | Product #001
Applicant: HOSPIRA INC
Approved: Apr 3, 1987 | RLD: No | RS: No | Type: DISCN